FAERS Safety Report 16339693 (Version 3)
Quarter: 2019Q2

REPORT INFORMATION
  Report Type: Spontaneous
  Country: JP (occurrence: JP)
  Receive Date: 20190521
  Receipt Date: 20190603
  Transmission Date: 20190711
  Serious: Yes (Death, Other)
  Sender: FDA-Public Use
  Company Number: JP-ELI_LILLY_AND_COMPANY-JP201905008751

PATIENT
  Age: 85 Year
  Sex: Female

DRUGS (7)
  1. VERZENIO [Suspect]
     Active Substance: ABEMACICLIB
     Indication: BREAST CANCER STAGE II
     Dosage: 150 MG, BID
     Route: 048
     Dates: start: 20190212, end: 20190213
  2. MORPHINE HYDROCHLORIDE [Concomitant]
     Active Substance: MORPHINE HYDROCHLORIDE
     Dosage: 5 MG/KG
     Route: 042
     Dates: start: 20190517
  3. VERZENIO [Suspect]
     Active Substance: ABEMACICLIB
     Dosage: 100 MG, BID
     Route: 048
     Dates: start: 20190422, end: 20190424
  4. VERZENIO [Suspect]
     Active Substance: ABEMACICLIB
     Dosage: 100 MG
     Route: 048
     Dates: start: 20190214, end: 20190410
  5. LIXIANA [Concomitant]
     Active Substance: EDOXABAN TOSYLATE
     Indication: VENOUS THROMBOSIS LIMB
     Dosage: UNK
     Dates: start: 20190208
  6. FULVESTRANT. [Concomitant]
     Active Substance: FULVESTRANT
     Indication: BREAST CANCER STAGE II
     Dosage: UNK
     Route: 030
     Dates: start: 20190212
  7. DENOSUMAB [Concomitant]
     Active Substance: DENOSUMAB
     Indication: METASTASES TO BONE
     Dosage: UNK
     Dates: start: 20190208, end: 201904

REACTIONS (6)
  - Atypical mycobacterial infection [Unknown]
  - Pulmonary embolism [Unknown]
  - Blood glucose increased [Unknown]
  - Diarrhoea [Recovering/Resolving]
  - Interstitial lung disease [Fatal]
  - Malaise [Unknown]

NARRATIVE: CASE EVENT DATE: 201904
